FAERS Safety Report 4459793-X (Version None)
Quarter: 2004Q3

REPORT INFORMATION
  Report Type: 
  Country: None (occurrence: None)
  Receive Date: 20040928
  Receipt Date: 20040810
  Transmission Date: 20050211
  Serious: No
  Sender: FDA-Public Use
  Company Number: US-BRISTOL-MYERS SQUIBB COMPANY-12666715

PATIENT
  Age: 50 Year
  Sex: Female

DRUGS (3)
  1. KENALOG-40 [Suspect]
     Indication: BURSITIS
     Dosage: ROUTE OF ADMINISTRATION:  INTRABURSALLY
     Route: 051
     Dates: start: 20040805, end: 20040805
  2. WELLBUTRIN [Concomitant]
  3. CONCERTA [Concomitant]

REACTIONS (1)
  - INJECTION SITE INFLAMMATION [None]
